FAERS Safety Report 5945559-8 (Version None)
Quarter: 2008Q4

REPORT INFORMATION
  Report Type: 
  Country: None (occurrence: None)
  Receive Date: 20081107
  Receipt Date: 20081031
  Transmission Date: 20090506
  Serious: No
  Sender: FDA-Public Use
  Company Number: US-B.I. PHARMACEUTICALS,INC./RIDGEFIELD-2008-BP-14796BP

PATIENT
  Sex: Female

DRUGS (3)
  1. SPIRIVA [Suspect]
     Indication: CHRONIC OBSTRUCTIVE PULMONARY DISEASE
     Dosage: 18MCG
     Route: 055
     Dates: start: 20080908
  2. HYDROCORTISONE [Concomitant]
     Indication: ADRENAL INSUFFICIENCY
  3. OTHER IPRATROPIUM PRODUCTS [Concomitant]

REACTIONS (4)
  - DYSPHAGIA [None]
  - DYSPHONIA [None]
  - RHINORRHOEA [None]
  - URINARY RETENTION [None]
